FAERS Safety Report 20921002 (Version 2)
Quarter: 2022Q2

REPORT INFORMATION
  Report Type: Spontaneous
  Country: US (occurrence: US)
  Receive Date: 20220606
  Receipt Date: 20220620
  Transmission Date: 20220721
  Serious: Yes (Other)
  Sender: FDA-Public Use
  Company Number: US-PFIZER INC-202200790382

PATIENT
  Age: 70 Year
  Sex: Female
  Weight: 120.2 kg

DRUGS (4)
  1. BORTEZOMIB [Suspect]
     Active Substance: BORTEZOMIB
     Dosage: UNK, CYCLIC (1.5 MG/M2 DAYS 1,8,15,22 ON A 29 DAY SCHEDULE)
     Dates: start: 20151004, end: 20160212
  2. LENALIDOMIDE [Suspect]
     Active Substance: LENALIDOMIDE
     Dosage: UNK
     Dates: start: 20151004, end: 20160212
  3. DEXAMETHASONE [Suspect]
     Active Substance: DEXAMETHASONE
     Dosage: 40 MG, WEEKLY
     Dates: start: 20151004, end: 20160212
  4. MELATONIN [Concomitant]
     Active Substance: MELATONIN
     Dosage: UNK (CAP, PO, NIGHTLY, 0 REFILL(S))
     Route: 048

REACTIONS (1)
  - Stem cell transplant [Unknown]

NARRATIVE: CASE EVENT DATE: 20160308
